FAERS Safety Report 7611564-9 (Version None)
Quarter: 2011Q3

REPORT INFORMATION
  Report Type: 
  Country: None (occurrence: None)
  Receive Date: 20110715
  Receipt Date: 20110707
  Transmission Date: 20111222
  Serious: Yes (Other)
  Sender: FDA-Public Use
  Company Number: US-GLAXOSMITHKLINE-A0924942A

PATIENT
  Age: 60 Year
  Sex: Male
  Weight: 70.5 kg

DRUGS (3)
  1. MALARONE [Suspect]
     Indication: MALARIA PROPHYLAXIS
     Dosage: 250MG PER DAY
     Route: 048
     Dates: start: 20110304, end: 20110328
  2. VITAMIN D [Concomitant]
  3. NO CONCURRENT MEDICATION [Concomitant]

REACTIONS (6)
  - SINUS BRADYCARDIA [None]
  - HEART RATE IRREGULAR [None]
  - BUNDLE BRANCH BLOCK RIGHT [None]
  - SUPRAVENTRICULAR EXTRASYSTOLES [None]
  - CARDIAC MURMUR [None]
  - ARRHYTHMIA [None]
